FAERS Safety Report 9674540 (Version 1)
Quarter: 2013Q4

REPORT INFORMATION
  Report Type: Other
  Country: IT (occurrence: IT)
  Receive Date: 20131107
  Receipt Date: 20131107
  Transmission Date: 20140711
  Serious: Yes (Life-Threatening)
  Sender: FDA-Public Use
  Company Number: IT-SUN PHARMACEUTICAL INDUSTRIES LTD-2013SUN04962

PATIENT
  Sex: 0

DRUGS (1)
  1. OXALIPLATINO [Suspect]
     Indication: COLON CANCER RECURRENT
     Dosage: UNK
     Route: 042
     Dates: start: 20131007, end: 20131007

REACTIONS (2)
  - Respiratory failure [Recovered/Resolved]
  - Hypotension [Recovered/Resolved]
